FAERS Safety Report 9361650 (Version 1)
Quarter: 2013Q2

REPORT INFORMATION
  Report Type: Spontaneous
  Country: US (occurrence: US)
  Receive Date: 20130621
  Receipt Date: 20130621
  Transmission Date: 20140414
  Serious: Yes (Hospitalization)
  Sender: FDA-Public Use
  Company Number: US-BAYER-2013-076500

PATIENT
  Age: 52 Year
  Sex: Female
  Weight: 126.98 kg

DRUGS (8)
  1. YAZ [Suspect]
  2. YASMIN [Suspect]
  3. PROZAC [Concomitant]
  4. IBUPROFEN [Concomitant]
  5. PREVACID [Concomitant]
  6. ADVAIR [Concomitant]
  7. ALBUTEROL [Concomitant]
  8. KLONOPIN [Concomitant]

REACTIONS (1)
  - Pulmonary embolism [None]
